FAERS Safety Report 9398349 (Version 3)
Quarter: 2013Q4

REPORT INFORMATION
  Report Type: Spontaneous
  Country: US (occurrence: US)
  Receive Date: 20130712
  Receipt Date: 20131009
  Transmission Date: 20140711
  Serious: Yes (Hospitalization)
  Sender: FDA-Public Use
  Company Number: US-GLAXOSMITHKLINE-A1007341A

PATIENT
  Age: 81 Year
  Sex: Female

DRUGS (1)
  1. FLOVENT [Suspect]
     Indication: DYSPNOEA
     Route: 055
     Dates: start: 20090911

REACTIONS (4)
  - Hospitalisation [Not Recovered/Not Resolved]
  - Gait disturbance [Unknown]
  - Dyspnoea [Unknown]
  - Monoplegia [Unknown]
